FAERS Safety Report 22227904 (Version 1)
Quarter: 2023Q2

REPORT INFORMATION
  Report Type: Spontaneous
  Country: JP (occurrence: JP)
  Receive Date: 20230419
  Receipt Date: 20230419
  Transmission Date: 20230721
  Serious: Yes (Other)
  Sender: FDA-Public Use
  Company Number: JP-MYLANLABS-2023M1039620

PATIENT
  Age: 84 Year

DRUGS (1)
  1. CELECOXIB [Suspect]
     Active Substance: CELECOXIB
     Indication: Pain
     Dosage: 100 MILLIGRAM, BID (2 TABLETS IN 2 DOSES)
     Route: 048

REACTIONS (2)
  - Cardiac failure chronic [Unknown]
  - Inadequate analgesia [Unknown]
